FAERS Safety Report 23329056 (Version 1)
Quarter: 2023Q4

REPORT INFORMATION
  Report Type: Spontaneous
  Country: US (occurrence: US)
  Receive Date: 20231222
  Receipt Date: 20231222
  Transmission Date: 20240110
  Serious: Yes (Other)
  Sender: FDA-Public Use
  Company Number: US-TOLMAR, INC.-23US045569

PATIENT
  Age: 39 Year
  Sex: Female

DRUGS (7)
  1. ELIGARD [Suspect]
     Active Substance: LEUPROLIDE ACETATE
     Indication: In vitro fertilisation
     Dosage: UNK
  2. ELIGARD [Suspect]
     Active Substance: LEUPROLIDE ACETATE
     Indication: In vitro fertilisation
     Dosage: UNK
  3. FOLLITROPIN [Suspect]
     Active Substance: FOLLITROPIN
     Indication: In vitro fertilisation
     Dosage: UNK
  4. ESTRADIOL [Suspect]
     Active Substance: ESTRADIOL
     Indication: In vitro fertilisation
     Dosage: UNK
  5. PROGESTERONE [Suspect]
     Active Substance: PROGESTERONE
     Indication: In vitro fertilisation
     Dosage: UNK
  6. UNSPECIFIED INGREDIENT [Suspect]
     Active Substance: UNSPECIFIED INGREDIENT
     Indication: In vitro fertilisation
     Dosage: UNK
  7. UNSPECIFIED INGREDIENT [Suspect]
     Active Substance: UNSPECIFIED INGREDIENT
     Indication: In vitro fertilisation
     Dosage: A SINGLE TRIGGER SHOT

REACTIONS (2)
  - Optic nerve sheath meningioma [Unknown]
  - Off label use [Unknown]
